FAERS Safety Report 18902096 (Version 1)
Quarter: 2021Q1

REPORT INFORMATION
  Report Type: Spontaneous
  Country: US (occurrence: US)
  Receive Date: 20210217
  Receipt Date: 20210217
  Transmission Date: 20210420
  Serious: No
  Sender: FDA-Public Use
  Company Number: US-GLAXOSMITHKLINE-US2021030899

PATIENT
  Sex: Male

DRUGS (1)
  1. VALTREX [Suspect]
     Active Substance: VALACYCLOVIR HYDROCHLORIDE
     Indication: HERPES ZOSTER
     Dosage: UNK

REACTIONS (4)
  - Pain [Unknown]
  - Pruritus [Unknown]
  - Skin burning sensation [Unknown]
  - Drug ineffective [Not Recovered/Not Resolved]
